FAERS Safety Report 12755594 (Version 4)
Quarter: 2018Q1

REPORT INFORMATION
  Report Type: Spontaneous
  Country: US (occurrence: US)
  Receive Date: 20160916
  Receipt Date: 20180323
  Transmission Date: 20180508
  Serious: Yes (Other)
  Sender: FDA-Public Use
  Company Number: US-BIOGEN-2016BI00289000

PATIENT
  Sex: Male

DRUGS (1)
  1. AVONEX [Suspect]
     Active Substance: INTERFERON BETA-1A
     Indication: MULTIPLE SCLEROSIS
     Route: 030
     Dates: start: 20120903, end: 20140130

REACTIONS (9)
  - Accident [Not Recovered/Not Resolved]
  - Multiple sclerosis relapse [Unknown]
  - Muscle rupture [Not Recovered/Not Resolved]
  - Paranoia [Unknown]
  - Memory impairment [Recovered/Resolved]
  - Fatigue [Recovered/Resolved]
  - Feeling hot [Unknown]
  - Anxiety [Unknown]
  - Chills [Recovered/Resolved]
